FAERS Safety Report 8771614 (Version 1)
Quarter: 2012Q4

REPORT INFORMATION
  Report Type: 
  Country: US (occurrence: US)
  Receive Date: 20120905
  Receipt Date: 20120905
  Transmission Date: 20130627
  Serious: Yes (Hospitalization, Disabling, Other)
  Sender: FDA-Public Use
  Company Number: US-009507513-1104USA02224

PATIENT

DRUGS (5)
  1. FOSAMAX [Suspect]
     Indication: OSTEOPOROSIS
     Dosage: 70 mg, QW
     Route: 048
     Dates: start: 20030115, end: 201010
  2. FOSAMAX [Suspect]
     Indication: OSTEOPOROSIS
     Dosage: 70 mg, QW
     Route: 048
  3. MK-9278 [Concomitant]
     Dosage: 1 UNK, UNK
     Dates: start: 1992
  4. CALCIUM (UNSPECIFIED) (+) VITAMIN D (UNSPECIFIED) [Concomitant]
     Dosage: 1200 mg, UNK
     Dates: start: 1992
  5. OMEGA-3 MARINE TRIGLYCERIDES [Concomitant]
     Dosage: 3000 mg, UNK

REACTIONS (50)
  - Fracture delayed union [Unknown]
  - Device failure [Unknown]
  - Suicidal ideation [Unknown]
  - Chronic obstructive pulmonary disease [Not Recovered/Not Resolved]
  - Arthropathy [Unknown]
  - Spinal column stenosis [Not Recovered/Not Resolved]
  - Hypertension [Not Recovered/Not Resolved]
  - Body mass index increased [Unknown]
  - Pneumonia [Recovering/Resolving]
  - Arthritis [Not Recovered/Not Resolved]
  - Fracture nonunion [Unknown]
  - Blood cholesterol increased [Unknown]
  - Angina pectoris [Unknown]
  - Chronic obstructive pulmonary disease [Unknown]
  - Osteoarthritis [Unknown]
  - Acute respiratory failure [Unknown]
  - Seroma [Unknown]
  - Intervertebral disc degeneration [Not Recovered/Not Resolved]
  - Femur fracture [Unknown]
  - Drug hypersensitivity [Unknown]
  - Drug hypersensitivity [Unknown]
  - Pain in extremity [Unknown]
  - Pneumonia [Unknown]
  - Insomnia [Unknown]
  - Tooth disorder [Unknown]
  - Anxiety [Unknown]
  - Fall [Unknown]
  - Foot fracture [Unknown]
  - Depression [Unknown]
  - Chest pain [Unknown]
  - Anaemia [Unknown]
  - Hypercholesterolaemia [Unknown]
  - Arteriosclerosis coronary artery [Unknown]
  - Foot fracture [Unknown]
  - Tendonitis [Unknown]
  - Rib fracture [Unknown]
  - Spinal compression fracture [Unknown]
  - Angina pectoris [Recovered/Resolved]
  - Tenosynovitis [Unknown]
  - Tendonitis [Unknown]
  - Tendonitis [Unknown]
  - Impaired healing [Unknown]
  - Cellulitis [Unknown]
  - Haematoma [Unknown]
  - Arthralgia [Unknown]
  - Musculoskeletal pain [Unknown]
  - Joint swelling [Unknown]
  - Constipation [Unknown]
  - Headache [Unknown]
  - Gastrooesophageal reflux disease [Unknown]
